FAERS Safety Report 7911376-2 (Version None)
Quarter: 2011Q4

REPORT INFORMATION
  Report Type: 
  Country: None (occurrence: None)
  Receive Date: 20111114
  Receipt Date: 20111107
  Transmission Date: 20120403
  Serious: Yes (Death, Life-Threatening, Hospitalization)
  Sender: FDA-Public Use
  Company Number: FR-ASTELLAS-2011US007459

PATIENT
  Sex: Male
  Weight: 50 kg

DRUGS (11)
  1. ERLOTINIB HYDROCHLORIDE [Suspect]
     Indication: MALIGNANT LYMPHOID NEOPLASM
     Dosage: 100 MG, UID/QD
     Route: 048
     Dates: start: 20100712, end: 20111007
  2. LEUCOVORIN CALCIUM [Concomitant]
     Indication: PRODUCT USED FOR UNKNOWN INDICATION
     Dosage: 25 MG, WEEKLY
     Route: 048
     Dates: start: 20100920
  3. LEVOFLOXACIN [Suspect]
     Indication: NASOPHARYNGITIS
     Dosage: 500 MG, UNKNOWN/D
     Route: 048
     Dates: start: 20110111, end: 20110114
  4. ERLOTINIB HYDROCHLORIDE [Suspect]
     Dosage: 150 MG, UID/QD
     Route: 048
     Dates: start: 20101017
  5. VITAMIN K TAB [Concomitant]
     Indication: PRODUCT USED FOR UNKNOWN INDICATION
     Dosage: 1 DF, Q3W
     Route: 042
     Dates: start: 20100920
  6. OMEPRAZOLE [Concomitant]
     Indication: GASTRITIS
     Dosage: 40 MG, UNKNOWN/D
     Route: 048
     Dates: start: 20111009, end: 20111010
  7. MORPHINE SULFATE [Concomitant]
     Indication: BACK PAIN
     Dosage: 70 MG, UNKNOWN/D
     Route: 048
     Dates: start: 20100601, end: 20100620
  8. ACUPAN [Concomitant]
     Indication: PRODUCT USED FOR UNKNOWN INDICATION
     Dosage: 20 MG, UID/QD
     Route: 065
     Dates: start: 20101102, end: 20101124
  9. AMOXICILLIN [Concomitant]
     Indication: PRODUCT USED FOR UNKNOWN INDICATION
     Dosage: 3 G, UNKNOWN/D
     Route: 048
     Dates: start: 20111010, end: 20111013
  10. CIPRO [Concomitant]
     Indication: PRODUCT USED FOR UNKNOWN INDICATION
     Dosage: UNK
     Route: 048
     Dates: start: 20111010, end: 20111013
  11. POLYETHYLENE GLYCOL [Concomitant]
     Indication: CONSTIPATION
     Dosage: 2 DF, BID
     Route: 048
     Dates: start: 20100712, end: 20100721

REACTIONS (12)
  - NEUTROPENIA [None]
  - NIGHT SWEATS [None]
  - DEVICE RELATED INFECTION [None]
  - PYREXIA [None]
  - PERFORMANCE STATUS DECREASED [None]
  - OFF LABEL USE [None]
  - NASOPHARYNGITIS [None]
  - HEPATOTOXICITY [None]
  - GASTRITIS [None]
  - INFECTION [None]
  - CLOSTRIDIUM TEST POSITIVE [None]
  - PERIRECTAL ABSCESS [None]
